FAERS Safety Report 10492545 (Version 3)
Quarter: 2015Q1

REPORT INFORMATION
  Report Type: Spontaneous
  Country: US (occurrence: US)
  Receive Date: 20141002
  Receipt Date: 20150202
  Transmission Date: 20150720
  Serious: No
  Sender: FDA-Public Use
  Company Number: US-GLAXOSMITHKLINE-A1072458A

PATIENT
  Age: 72 Year
  Sex: Female

DRUGS (9)
  1. ADVAIR DISKUS [Suspect]
     Active Substance: FLUTICASONE PROPIONATE\SALMETEROL XINAFOATE
     Indication: ASTHMA
     Dosage: 250/50 MCG ONE PUFF TWICE DAILY
     Route: 055
     Dates: start: 20110804
  2. MONTELUKAST [Concomitant]
     Active Substance: MONTELUKAST SODIUM
  3. ADVAIR DISKUS [Suspect]
     Active Substance: FLUTICASONE PROPIONATE\SALMETEROL XINAFOATE
     Indication: MULTIPLE ALLERGIES
     Dosage: 1 PUFF(S), BID
     Route: 055
     Dates: start: 20141110
  4. PROAIR HFA [Concomitant]
     Active Substance: ALBUTEROL SULFATE
  5. IPRATROPIUM [Concomitant]
     Active Substance: IPRATROPIUM
  6. FLONASE [Concomitant]
     Active Substance: FLUTICASONE PROPIONATE
  7. LORAZEPAM. [Concomitant]
     Active Substance: LORAZEPAM
  8. ALBUTEROL. [Concomitant]
     Active Substance: ALBUTEROL
  9. SPIRONOLACTONE + HYDROCHLOROTHIAZIDE [Concomitant]

REACTIONS (3)
  - Dyspnoea [Not Recovered/Not Resolved]
  - Product quality issue [Unknown]
  - Dysphonia [Not Recovered/Not Resolved]

NARRATIVE: CASE EVENT DATE: 20140506
